FAERS Safety Report 8694882 (Version 2)
Quarter: 2012Q4

REPORT INFORMATION
  Report Type: Spontaneous
  Country: JP (occurrence: None)
  Receive Date: 20120716
  Receipt Date: 20120814
  Transmission Date: 20130627
  Serious: Yes (Hospitalization)
  Sender: FDA-Public Use
  Company Number: SP05877

PATIENT
  Age: 51 Year
  Sex: Female

DRUGS (4)
  1. VISICOL [Suspect]
     Indication: BOWEL PREPARATION
     Dosage: ORAL
     Route: 048
     Dates: start: 20120702, end: 20120702
  2. POTASSIUM L-ASPARTATE [Concomitant]
  3. POTASSIUM CHLORIDE [Concomitant]
  4. ZOPICLONE [Concomitant]

REACTIONS (4)
  - Respiratory disorder [None]
  - Blood calcium decreased [None]
  - Musculoskeletal stiffness [None]
  - Hypoaesthesia [None]
